FAERS Safety Report 5801235-3 (Version None)
Quarter: 2008Q3

REPORT INFORMATION
  Report Type: 
  Country: None (occurrence: None)
  Receive Date: 20080707
  Receipt Date: 20080626
  Transmission Date: 20090109
  Serious: Yes (Other)
  Sender: FDA-Public Use
  Company Number: US-JNJFOC-20080606908

PATIENT
  Sex: Female
  Weight: 90.72 kg

DRUGS (5)
  1. DURAGESIC-100 [Suspect]
     Indication: PAIN
     Route: 062
  2. EFFEXOR XR [Concomitant]
     Indication: DEPRESSION
     Route: 048
  3. NEURONTIN [Concomitant]
     Route: 048
  4. HYDROCODONE [Concomitant]
     Indication: PAIN
     Dosage: 10/ 325 MG
     Route: 048
  5. SYNTHROID [Concomitant]
     Indication: THYROID DISORDER
     Route: 048

REACTIONS (7)
  - BLOOD CHOLESTEROL [None]
  - DRUG EFFECT INCREASED [None]
  - DYSGEUSIA [None]
  - DYSPNOEA [None]
  - INSOMNIA [None]
  - MYALGIA [None]
  - THYROID DISORDER [None]
